FAERS Safety Report 7974459-7 (Version None)
Quarter: 2011Q4

REPORT INFORMATION
  Report Type: 
  Country: None (occurrence: None)
  Receive Date: 20111213
  Receipt Date: 20111206
  Transmission Date: 20120403
  Serious: No
  Sender: FDA-Public Use
  Company Number: US-B.I. PHARMACEUTICALS,INC./RIDGEFIELD-2011-BP-24623BP

PATIENT
  Age: 75 Year
  Sex: Male

DRUGS (13)
  1. PROSCAR [Concomitant]
  2. INSULIN [Concomitant]
  3. FLOMAX [Concomitant]
  4. PRADAXA [Suspect]
     Indication: CORONARY ARTERY BYPASS
  5. PRADAXA [Suspect]
     Indication: ATRIAL FIBRILLATION
     Dosage: 300 MG
     Route: 048
  6. BROBIOTIC [Concomitant]
  7. TOPROL-XL [Concomitant]
  8. NIACIN [Concomitant]
  9. ACETAMINOPHEN [Concomitant]
  10. LEVEMIR [Concomitant]
  11. TRAVATAN [Concomitant]
  12. PROTONIX [Concomitant]
  13. PRADAXA [Suspect]
     Indication: ANTICOAGULANT THERAPY

REACTIONS (5)
  - THROAT IRRITATION [None]
  - SENSATION OF FOREIGN BODY [None]
  - DYSPHAGIA [None]
  - OROPHARYNGEAL PAIN [None]
  - PHARYNGEAL ULCERATION [None]
